FAERS Safety Report 20460184 (Version 5)
Quarter: 2023Q1

REPORT INFORMATION
  Report Type: Report from Study
  Country: BR (occurrence: BR)
  Receive Date: 20220211
  Receipt Date: 20230110
  Transmission Date: 20230417
  Serious: Yes (Other)
  Sender: FDA-Public Use
  Company Number: BR-UCBSA-2022006547

PATIENT
  Age: 60 Year
  Sex: Female
  Weight: 74 kg

DRUGS (4)
  1. CERTOLIZUMAB PEGOL [Suspect]
     Active Substance: CERTOLIZUMAB PEGOL
     Indication: Ankylosing spondylitis
     Dosage: 400 MILLIGRAM, EV 2 WEEKS(QOW)
     Route: 058
     Dates: start: 202108
  2. CERTOLIZUMAB PEGOL [Suspect]
     Active Substance: CERTOLIZUMAB PEGOL
     Dosage: 200 MILLIGRAM, EV 15 DAYS
     Route: 058
     Dates: start: 20210821
  3. AMPICILINA [AMPICILLIN] [Concomitant]
     Indication: Ankylosing spondylitis
     Dosage: 2 DOSAGE FORM, ONCE DAILY (QD)
     Route: 048
  4. CLONAZEPAM [Concomitant]
     Active Substance: CLONAZEPAM
     Indication: Sleep disorder
     Dosage: 2 MILLIGRAM, ONCE DAILY (QD)
     Route: 048

REACTIONS (6)
  - Gait disturbance [Not Recovered/Not Resolved]
  - Ankylosing spondylitis [Not Recovered/Not Resolved]
  - Swelling [Recovering/Resolving]
  - Bedridden [Not Recovered/Not Resolved]
  - Therapy interrupted [Unknown]
  - Drug ineffective [Unknown]

NARRATIVE: CASE EVENT DATE: 20221001
